FAERS Safety Report 8439875-8 (Version None)
Quarter: 2012Q2

REPORT INFORMATION
  Report Type: 
  Country: None (occurrence: None)
  Receive Date: 20120615
  Receipt Date: 20120612
  Transmission Date: 20120825
  Serious: Yes (Other)
  Sender: FDA-Public Use
  Company Number: PHHY2011US02835

PATIENT
  Sex: Female
  Weight: 113.38 kg

DRUGS (5)
  1. TOPIRAMATE [Concomitant]
     Indication: MIGRAINE
     Dosage: 50 MG, QHS
     Route: 048
     Dates: start: 20120201
  2. LISINOPRIL [Concomitant]
     Dosage: 10 MG, UNK
  3. CELEXA [Concomitant]
     Dosage: 20 MG, UNK
  4. GILENYA [Suspect]
     Indication: MULTIPLE SCLEROSIS
     Dosage: 0.5 MG, QD
     Route: 048
     Dates: start: 20110106
  5. PROPRANOLOL [Concomitant]
     Indication: ESSENTIAL TREMOR
     Dosage: 40 MG, Q6H
     Route: 048
     Dates: start: 20120201

REACTIONS (9)
  - DYSPNOEA [None]
  - HYPERTENSIVE CRISIS [None]
  - INCREASED APPETITE [None]
  - DYSPEPSIA [None]
  - ANXIETY [None]
  - MOOD ALTERED [None]
  - CHROMATURIA [None]
  - BACK PAIN [None]
  - DIZZINESS [None]
